FAERS Safety Report 7664852 (Version 5)
Quarter: 2013Q3

REPORT INFORMATION
  Report Type: Spontaneous
  Country: US (occurrence: US)
  Receive Date: 20101111
  Receipt Date: 20130712
  Transmission Date: 20140515
  Serious: Yes (Hospitalization, Other)
  Sender: FDA-Public Use
  Company Number: US-ROCHE-718901

PATIENT
  Age: 20 Year
  Sex: Female
  Weight: 51.3 kg

DRUGS (2)
  1. ACCUTANE [Suspect]
     Indication: ACNE
     Route: 065
     Dates: start: 199306, end: 199406
  2. TYLENOL [Concomitant]

REACTIONS (9)
  - Crohn^s disease [Unknown]
  - Fistula [Unknown]
  - Gastrointestinal injury [Unknown]
  - Inflammatory bowel disease [Unknown]
  - Colitis [Unknown]
  - Rectal abscess [Unknown]
  - Anal fissure [Unknown]
  - Arthritis [Unknown]
  - Anal fistula [Unknown]
